FAERS Safety Report 4937558-X (Version None)
Quarter: 2006Q1

REPORT INFORMATION
  Report Type: 
  Country: None (occurrence: None)
  Receive Date: 20060306
  Receipt Date: 20060223
  Transmission Date: 20060701
  Serious: Yes (Death)
  Sender: FDA-Public Use
  Company Number: 163-20785-06010221

PATIENT
  Age: 64 Year
  Sex: Male

DRUGS (2)
  1. THALOMID [Suspect]
     Indication: MULTIPLE MYELOMA
     Dosage: 200 MG, AT BEDTIME, ORAL
     Route: 048
     Dates: start: 20050517, end: 20051101
  2. CHEMOTHERAPY [Suspect]
     Indication: MULTIPLE MYELOMA
     Dosage: 200 MG, AT BEDTIME, ORAL
     Route: 048
     Dates: start: 20050517, end: 20051101

REACTIONS (1)
  - VENOOCCLUSIVE DISEASE [None]
